FAERS Safety Report 15967099 (Version 1)
Quarter: 2019Q1

REPORT INFORMATION
  Report Type: Report from Study
  Country: KR (occurrence: KR)
  Receive Date: 20190215
  Receipt Date: 20190215
  Transmission Date: 20190418
  Serious: Yes (Hospitalization)
  Sender: FDA-Public Use
  Company Number: KR-SA-2014SA039876

PATIENT
  Age: 72 Year
  Sex: Female
  Weight: 59 kg

DRUGS (16)
  1. SARILUMAB [Suspect]
     Active Substance: SARILUMAB
     Indication: RHEUMATOID ARTHRITIS
     Dosage: 150 MG,QOW
     Route: 058
     Dates: start: 20110823, end: 20140318
  2. CARBAZOCHROME [Concomitant]
     Active Substance: CARBAZOCHROME
     Indication: PROPHYLAXIS
     Dosage: 1 DF,BID
     Route: 048
     Dates: start: 20101117
  3. CINALONG [Concomitant]
     Dosage: UNK UNK,UNK
     Route: 048
     Dates: start: 20140310
  4. METHOTREXATE. [Suspect]
     Active Substance: METHOTREXATE
     Indication: RHEUMATOID ARTHRITIS
     Dosage: 15 MG,QW
     Route: 048
     Dates: start: 20110110, end: 20130328
  5. STILLEN [Concomitant]
     Indication: PROPHYLAXIS
     Dosage: 120 MG,BID
     Route: 048
     Dates: start: 20101110
  6. ALCOHOL. [Concomitant]
     Active Substance: ALCOHOL
     Indication: PROPHYLAXIS
     Dosage: UNK UNK,UNK
     Route: 048
     Dates: start: 20101110
  7. AMLODIPINE [Concomitant]
     Active Substance: AMLODIPINE BESYLATE
     Dosage: UNK UNK,UNK
     Route: 048
     Dates: start: 20130917, end: 20140310
  8. LANTUS [Concomitant]
     Active Substance: INSULIN GLARGINE
     Dosage: UNK UNK,QD
     Route: 058
     Dates: start: 20140412
  9. LANTUS [Concomitant]
     Active Substance: INSULIN GLARGINE
     Dosage: UNK UNK,QD
     Route: 058
     Dates: start: 20140326, end: 20140328
  10. LANTUS [Concomitant]
     Active Substance: INSULIN GLARGINE
     Dosage: UNK UNK,QD
     Route: 058
     Dates: start: 20140330, end: 20140402
  11. ACECLOFENAC [Concomitant]
     Active Substance: ACECLOFENAC
     Dosage: 200 MG,BID
     Route: 048
     Dates: start: 20101110
  12. ACETAMINOPHEN. [Concomitant]
     Active Substance: ACETAMINOPHEN
     Dosage: UNK UNK,TID
     Route: 048
     Dates: start: 20110110
  13. APROVEL [Concomitant]
     Active Substance: IRBESARTAN
     Dosage: 300 MG,QD
     Route: 048
     Dates: start: 20131210
  14. FOLIC ACID. [Suspect]
     Active Substance: FOLIC ACID
     Indication: RHEUMATOID ARTHRITIS
     Dosage: 1 MG,QD
     Route: 048
     Dates: start: 20101110
  15. LANTUS [Concomitant]
     Active Substance: INSULIN GLARGINE
     Dosage: UNK UNK,QD
     Route: 058
     Dates: start: 20140404, end: 20140411
  16. SOLONDO [Concomitant]
     Active Substance: PREDNISOLONE
     Dosage: 5 MG,QD
     Route: 048
     Dates: start: 20101110, end: 20140410

REACTIONS (2)
  - Pneumothorax [Recovered/Resolved]
  - Pneumothorax [Recovered/Resolved]

NARRATIVE: CASE EVENT DATE: 20140321
